FAERS Safety Report 15887339 (Version 1)
Quarter: 2019Q1

REPORT INFORMATION
  Report Type: Spontaneous
  Country: PL (occurrence: PL)
  Receive Date: 20190130
  Receipt Date: 20190130
  Transmission Date: 20190417
  Serious: Yes (Other)
  Sender: FDA-Public Use
  Company Number: PL-LEO PHARMA-316363

PATIENT
  Age: 78 Year
  Sex: Female

DRUGS (2)
  1. PROTOPIC [Suspect]
     Active Substance: TACROLIMUS
     Indication: ECTROPION
     Route: 061
  2. VITAMIN A, VITAMIN E (RETINOL\TOCOPHEROL) [Suspect]
     Active Substance: RETINOL\TOCOPHEROL
     Indication: HYPERKERATOSIS
     Route: 061

REACTIONS (4)
  - Lymphopenia [Unknown]
  - Blood glucose increased [Unknown]
  - Product use in unapproved indication [Unknown]
  - Red blood cell sedimentation rate increased [Unknown]
